FAERS Safety Report 7440330-2 (Version None)
Quarter: 2011Q2

REPORT INFORMATION
  Report Type: 
  Country: None (occurrence: None)
  Receive Date: 20110427
  Receipt Date: 20110421
  Transmission Date: 20111010
  Serious: Yes (Other)
  Sender: FDA-Public Use
  Company Number: JP-PFIZER INC-2011087323

PATIENT
  Age: 32 Year
  Sex: Female

DRUGS (1)
  1. CABASER [Suspect]
     Indication: BLOOD PROLACTIN ABNORMAL
     Dosage: UNK, 1X/WEEK

REACTIONS (1)
  - ANGIOSCLEROSIS [None]
